FAERS Safety Report 18149977 (Version 1)
Quarter: 2020Q3

REPORT INFORMATION
  Report Type: Spontaneous
  Country: US (occurrence: US)
  Receive Date: 20200814
  Receipt Date: 20200814
  Transmission Date: 20201103
  Serious: Yes (Other)
  Sender: FDA-Public Use
  Company Number: None

PATIENT
  Age: 76 Year
  Sex: Female
  Weight: 49.5 kg

DRUGS (6)
  1. MULTIVITAMIN [Concomitant]
     Active Substance: VITAMINS
  2. VITAMIN D [Concomitant]
     Active Substance: VITAMIN D NOS
  3. PRESERVISION [Concomitant]
     Active Substance: MINERALS\VITAMINS
  4. ZOLPIDEM [Concomitant]
     Active Substance: ZOLPIDEM TARTRATE
  5. GABAPENTIN (NEURONTIN IS THE GENERIC NAME, I BELIEVE.) [Suspect]
     Active Substance: GABAPENTIN
     Indication: NEURALGIA
     Dosage: ?          QUANTITY:500 TABLET(S);?
     Route: 048
  6. FISH OIL [Concomitant]
     Active Substance: FISH OIL

REACTIONS (4)
  - Product substitution issue [None]
  - Pain [None]
  - Tremor [None]
  - Suicidal ideation [None]

NARRATIVE: CASE EVENT DATE: 20200807
